FAERS Safety Report 7658361-6 (Version None)
Quarter: 2011Q3

REPORT INFORMATION
  Report Type: 
  Country: None (occurrence: None)
  Receive Date: 20110805
  Receipt Date: 20110729
  Transmission Date: 20111222
  Serious: Yes (Hospitalization)
  Sender: FDA-Public Use
  Company Number: CO-JNJFOC-20110603116

PATIENT
  Age: 42 Year
  Sex: Female

DRUGS (4)
  1. TOPIRAMATE [Suspect]
     Indication: EPILEPSY
     Route: 048
  2. TOPIRAMATE [Suspect]
     Indication: MENTAL RETARDATION
     Route: 048
  3. HALOPERIDOL [Suspect]
     Indication: ILL-DEFINED DISORDER
     Route: 065
  4. VALPROIC ACID [Concomitant]
     Route: 065

REACTIONS (1)
  - THROMBOCYTOPENIA [None]
